FAERS Safety Report 6447266-4 (Version None)
Quarter: 2009Q4

REPORT INFORMATION
  Report Type: 
  Country: None (occurrence: None)
  Receive Date: 20091119
  Receipt Date: 20091110
  Transmission Date: 20100525
  Serious: Yes (Death, Hospitalization, Disabling)
  Sender: FDA-Public Use
  Company Number: BE-AMGEN-UK320888

PATIENT
  Sex: Male

DRUGS (20)
  1. PANITUMUMAB [Suspect]
     Indication: SQUAMOUS CELL CARCINOMA
     Route: 042
     Dates: start: 20081013, end: 20081202
  2. RADIATION THERAPY [Suspect]
     Dates: end: 20081125
  3. METHYLENE BLUE [Concomitant]
     Dates: start: 20081118, end: 20081130
  4. PARACETAMOL [Concomitant]
     Route: 048
     Dates: start: 20080901, end: 20081113
  5. TRAMADOL [Concomitant]
     Route: 048
     Dates: start: 20081013, end: 20081102
  6. DIAZEPAM [Concomitant]
     Route: 048
     Dates: start: 20081117, end: 20081205
  7. TRAZODONE HCL [Concomitant]
     Dates: start: 20030101, end: 20081101
  8. NICOTINE TRANSDERMAL [Concomitant]
     Route: 062
     Dates: start: 20080901, end: 20081201
  9. TOBRAMYCIN [Concomitant]
     Route: 031
     Dates: start: 20081103, end: 20081105
  10. IRON [Concomitant]
     Route: 042
     Dates: start: 20081110, end: 20081111
  11. ISOBETADINE [Concomitant]
     Route: 061
     Dates: start: 20081106, end: 20081111
  12. CERNEVIT-12 [Concomitant]
     Route: 042
     Dates: start: 20081110, end: 20081119
  13. AMOXICILLIN [Concomitant]
     Route: 048
     Dates: start: 20081119, end: 20081130
  14. DROPERIDOL [Concomitant]
     Route: 030
     Dates: start: 20081126, end: 20081203
  15. RED BLOOD CELLS [Concomitant]
     Route: 042
     Dates: start: 20081117, end: 20081117
  16. RANITIDINE [Concomitant]
  17. ZOPICLONE [Concomitant]
  18. FOLIC ACID [Concomitant]
  19. OLANZAPINE [Concomitant]
  20. ALUMINIUM HYDROXIDE-MAGNESIUM CARB. GEL [Concomitant]

REACTIONS (8)
  - CARDIAC ARREST [None]
  - CONFUSIONAL STATE [None]
  - DERMATITIS [None]
  - KORSAKOFF'S PSYCHOSIS ALCOHOLIC [None]
  - STAPHYLOCOCCAL IMPETIGO [None]
  - STOMATITIS [None]
  - SUDDEN DEATH [None]
  - TREATMENT NONCOMPLIANCE [None]
